FAERS Safety Report 5359322-2 (Version None)
Quarter: 2007Q2

REPORT INFORMATION
  Report Type: 
  Country: None (occurrence: None)
  Receive Date: 20070615
  Receipt Date: 20070613
  Transmission Date: 20071010
  Serious: Yes (Hospitalization)
  Sender: FDA-Public Use
  Company Number: JP-BOEHRINGER INGELHEIM PHARMACEUTICALS, INC.-2007-BP-07574NB

PATIENT
  Sex: Female

DRUGS (12)
  1. MICARDIS [Suspect]
     Indication: HYPERTENSION
     Route: 048
     Dates: start: 20060413, end: 20060607
  2. DAONIL [Concomitant]
     Indication: DIABETES MELLITUS
     Route: 048
  3. BASEN [Concomitant]
     Indication: DIABETES MELLITUS
     Route: 048
  4. ACTOS [Concomitant]
     Indication: DIABETES MELLITUS
     Route: 048
  5. PREDNISOLONE [Concomitant]
     Indication: INTERSTITIAL LUNG DISEASE
     Route: 048
  6. GASTER D [Concomitant]
     Indication: PROPHYLAXIS
     Route: 048
  7. GASLON N (IRSOGLADINE MALEATE) [Concomitant]
     Indication: PROPHYLAXIS
     Route: 048
  8. LIPITOR [Concomitant]
     Indication: HYPERCHOLESTEROLAEMIA
     Route: 048
  9. AMLODIN [Concomitant]
     Indication: HYPERTENSION
     Route: 048
  10. THEOLONG [Concomitant]
     Indication: INTERSTITIAL LUNG DISEASE
     Route: 048
  11. HOKUNALIN:TAPE (ULOBUTEROL) [Concomitant]
     Indication: INTERSTITIAL LUNG DISEASE
     Route: 062
  12. DEXTROMETHORPHAN HYDROBROMIDE [Concomitant]
     Indication: INTERSTITIAL LUNG DISEASE
     Route: 048

REACTIONS (1)
  - INTERSTITIAL LUNG DISEASE [None]
